FAERS Safety Report 8584567-8 (Version None)
Quarter: 2012Q3

REPORT INFORMATION
  Report Type: 
  Country: None (occurrence: None)
  Receive Date: 20120810
  Receipt Date: 20120803
  Transmission Date: 20120928
  Serious: Yes (Other)
  Sender: FDA-Public Use
  Company Number: US-BAYER-2012-063138

PATIENT
  Age: 51 Year
  Sex: Male

DRUGS (2)
  1. BACLOFEN [Concomitant]
  2. BETASERON [Suspect]
     Indication: RELAPSING-REMITTING MULTIPLE SCLEROSIS
     Dosage: 8 MIU, QOD
     Route: 058
     Dates: start: 20040101

REACTIONS (9)
  - MUSCLE SPASMS [None]
  - BLOOD PRESSURE INCREASED [None]
  - MIGRAINE [None]
  - HEADACHE [None]
  - ACROCHORDON EXCISION [None]
  - CHILLS [None]
  - MYALGIA [None]
  - PYREXIA [None]
  - MALAISE [None]
